FAERS Safety Report 14099890 (Version 2)
Quarter: 2017Q4

REPORT INFORMATION
  Report Type: Spontaneous
  Country: IT (occurrence: IT)
  Receive Date: 20171017
  Receipt Date: 20171024
  Transmission Date: 20180321
  Serious: Yes (Other)
  Sender: FDA-Public Use
  Company Number: IT-ELI_LILLY_AND_COMPANY-IT201710004719

PATIENT
  Age: 74 Year
  Sex: Female

DRUGS (1)
  1. GEMCITABINE HYDROCHLORIDE. [Suspect]
     Active Substance: GEMCITABINE HYDROCHLORIDE
     Indication: CHOLANGIOCARCINOMA
     Dosage: 1000 MG/M2, CYCLICAL
     Route: 065
     Dates: start: 201604, end: 2016

REACTIONS (2)
  - Thrombocytopenia [Recovered/Resolved]
  - Lymphoedema [Recovered/Resolved]

NARRATIVE: CASE EVENT DATE: 2016
